FAERS Safety Report 9053476 (Version 2)
Quarter: 2013Q1

REPORT INFORMATION
  Report Type: Spontaneous
  Country: US (occurrence: None)
  Receive Date: 20130117
  Receipt Date: 20130329
  Transmission Date: 20140127
  Serious: Yes (Other)
  Sender: FDA-Public Use
  Company Number: ADR-2012-01257

PATIENT
  Sex: Male

DRUGS (2)
  1. LIORESAL INTRATHECAL (BACLOFEN INJECTION) 2000MCG/ML [Suspect]
     Indication: MUSCLE SPASTICITY
     Dosage: 552 MCG/DAY; SEE B5
  2. ORAL BACLOFEN; ORAL VALIUM [Concomitant]

REACTIONS (3)
  - Therapeutic response decreased [None]
  - Muscle spasms [None]
  - Immobile [None]
